FAERS Safety Report 13495062 (Version 2)
Quarter: 2017Q2

REPORT INFORMATION
  Report Type: Spontaneous
  Country: DE (occurrence: DE)
  Receive Date: 20170428
  Receipt Date: 20170515
  Transmission Date: 20170830
  Serious: Yes (Other)
  Sender: FDA-Public Use
  Company Number: DE-TORRENT-00006432

PATIENT
  Age: 59 Year
  Sex: Male
  Weight: 71 kg

DRUGS (5)
  1. RISPERIDONE. [Suspect]
     Active Substance: RISPERIDONE
  2. ERGENYL [Suspect]
     Active Substance: VALPROIC ACID
  3. PIPAMPERONE HYDROCHLORIDE [Concomitant]
     Active Substance: PIPAMPERONE HYDROCHLORIDE
  4. PHENHYDAN [Suspect]
     Active Substance: PHENYTOIN
  5. PASCOFLAIR [Concomitant]

REACTIONS (3)
  - Tonic convulsion [Unknown]
  - Tonic convulsion [Unknown]
  - Nocturia [Unknown]

NARRATIVE: CASE EVENT DATE: 20161222
